FAERS Safety Report 7355388-9 (Version None)
Quarter: 2011Q1

REPORT INFORMATION
  Report Type: 
  Country: None (occurrence: None)
  Receive Date: 20110316
  Receipt Date: 20110314
  Transmission Date: 20110831
  Serious: Yes (Hospitalization)
  Sender: FDA-Public Use
  Company Number: ES-ROCHE-765210

PATIENT
  Age: 46 Year
  Sex: Male

DRUGS (2)
  1. IRINOTECAN HYDROCHLORIDE [Suspect]
     Indication: ASTROCYTOMA
     Route: 065
     Dates: start: 20110126, end: 20110126
  2. AVASTIN [Suspect]
     Indication: ASTROCYTOMA
     Route: 065
     Dates: start: 20110126, end: 20110126

REACTIONS (1)
  - MUCOSAL INFLAMMATION [None]
